FAERS Safety Report 7496629-7 (Version None)
Quarter: 2011Q2

REPORT INFORMATION
  Report Type: 
  Country: None (occurrence: None)
  Receive Date: 20110523
  Receipt Date: 20110511
  Transmission Date: 20111010
  Serious: Yes (Other)
  Sender: FDA-Public Use
  Company Number: US-CELGENEUS-163-21880-11051543

PATIENT
  Sex: Male

DRUGS (9)
  1. FLUTICASONE PROPIONATE [Concomitant]
     Route: 065
  2. REVLIMID [Suspect]
     Indication: MYELODYSPLASTIC SYNDROME
     Dosage: 10 MILLIGRAM
     Route: 048
     Dates: start: 20110426
  3. LEVOTHYROXINE SODIUM [Concomitant]
     Route: 065
  4. POTASSIUM CHLORIDE [Concomitant]
     Route: 065
  5. VITAMIN D [Concomitant]
     Route: 065
  6. VITAMIN B-12 [Concomitant]
     Route: 065
  7. M.V.I. [Concomitant]
     Route: 065
  8. WARFARIN SODIUM [Concomitant]
     Route: 065
  9. PAROXETINE HCL [Concomitant]
     Route: 065

REACTIONS (2)
  - HAEMATOCRIT DECREASED [None]
  - PROTHROMBIN TIME PROLONGED [None]
